FAERS Safety Report 6191175-5 (Version None)
Quarter: 2009Q2

REPORT INFORMATION
  Report Type: 
  Country: None (occurrence: None)
  Receive Date: 20090515
  Receipt Date: 20070822
  Transmission Date: 20091009
  Serious: Yes (Hospitalization)
  Sender: FDA-Public Use
  Company Number: US-ASTRAZENECA-2006UW11194

PATIENT
  Age: 11372 Day
  Sex: Male
  Weight: 89.4 kg

DRUGS (14)
  1. SEROQUEL [Suspect]
     Indication: BIPOLAR DISORDER
     Route: 048
     Dates: start: 20000101, end: 20040101
  2. SEROQUEL [Suspect]
     Indication: DEPRESSION
     Route: 048
     Dates: start: 20000101, end: 20040101
  3. SEROQUEL [Suspect]
     Dosage: 25-400 MG
     Route: 048
     Dates: start: 20000623
  4. SEROQUEL [Suspect]
     Dosage: 25-400 MG
     Route: 048
     Dates: start: 20000623
  5. ZYPREXA [Suspect]
     Route: 065
  6. DEPAKOTE [Concomitant]
     Dosage: 500-750 MG
     Route: 048
  7. NEURONTIN [Concomitant]
     Indication: MOOD ALTERED
     Dosage: 100-300 MG
     Route: 048
  8. KLONOPIN [Concomitant]
     Route: 065
  9. TYLENOL [Concomitant]
     Route: 048
  10. RISPERDAL [Concomitant]
     Dosage: 0.5-3 MG
     Route: 048
  11. CELEXA [Concomitant]
     Route: 065
  12. RESTORIL [Concomitant]
     Route: 048
  13. ATIVAN [Concomitant]
     Indication: INSOMNIA
     Dosage: 0.5-2 MG
     Route: 048
  14. MOTRIN [Concomitant]
     Indication: PAIN
     Route: 048

REACTIONS (4)
  - BACK PAIN [None]
  - BIPOLAR DISORDER [None]
  - DIABETES MELLITUS [None]
  - PSYCHOTIC DISORDER [None]
